FAERS Safety Report 13520531 (Version 1)
Quarter: 2017Q2

REPORT INFORMATION
  Report Type: Report from Study
  Country: GB (occurrence: GB)
  Receive Date: 20170508
  Receipt Date: 20170508
  Transmission Date: 20170830
  Serious: Yes (Hospitalization)
  Sender: FDA-Public Use
  Company Number: GB-ROCHE-1930383

PATIENT
  Age: 72 Year
  Sex: Female

DRUGS (3)
  1. RITUXIMAB [Suspect]
     Active Substance: RITUXIMAB
     Indication: RHEUMATOID ARTHRITIS
     Route: 065
     Dates: start: 20081211
  2. METHOTREXATE. [Concomitant]
     Active Substance: METHOTREXATE
     Indication: RHEUMATOID ARTHRITIS
  3. SULFASALAZINE DELAYED-RELEASE [Concomitant]
     Active Substance: SULFASALAZINE

REACTIONS (9)
  - Cholelithiasis [Unknown]
  - Obstructive airways disorder [Unknown]
  - Lung infection [Unknown]
  - Pulmonary embolism [Unknown]
  - Ischaemic hepatitis [Unknown]
  - Liver disorder [Unknown]
  - Rotator cuff syndrome [Unknown]
  - Portal vein thrombosis [Unknown]
  - Mesenteric vein thrombosis [Unknown]

NARRATIVE: CASE EVENT DATE: 20160424
